FAERS Safety Report 20544432 (Version 3)
Quarter: 2023Q1

REPORT INFORMATION
  Report Type: Spontaneous
  Country: US (occurrence: US)
  Receive Date: 20220303
  Receipt Date: 20230322
  Transmission Date: 20230417
  Serious: No
  Sender: FDA-Public Use
  Company Number: US-LUPIN PHARMACEUTICALS INC.-2022-02693

PATIENT

DRUGS (2)
  1. FYAVOLV [Suspect]
     Active Substance: ETHINYL ESTRADIOL\NORETHINDRONE ACETATE
     Indication: Product used for unknown indication
     Dosage: UNK, (OLD LOT WITH NO PROBLEM)
     Route: 065
  2. FYAVOLV [Suspect]
     Active Substance: ETHINYL ESTRADIOL\NORETHINDRONE ACETATE
     Dosage: UNK, (NEW LOT WITH PROBLEM)
     Route: 065

REACTIONS (8)
  - Drug intolerance [Unknown]
  - Abdominal pain [Unknown]
  - Vision blurred [Unknown]
  - Illness [Unknown]
  - Gallbladder disorder [Unknown]
  - Product quality issue [Unknown]
  - Product dispensing error [Unknown]
  - Product label issue [Unknown]

NARRATIVE: CASE EVENT DATE: 20220213
